FAERS Safety Report 7524720-5 (Version None)
Quarter: 2011Q2

REPORT INFORMATION
  Report Type: 
  Country: None (occurrence: None)
  Receive Date: 20110525
  Receipt Date: 20110510
  Transmission Date: 20111010
  Serious: Yes (Hospitalization, Other)
  Sender: FDA-Public Use
  Company Number: 2011MA005743

PATIENT
  Age: 33 Year
  Sex: Male

DRUGS (5)
  1. ZONISAMIDE [Concomitant]
  2. CARBAMAZEPINE [Suspect]
     Indication: STATUS EPILEPTICUS
     Dosage: 400 MG OD,
  3. PHENYTOIN [Concomitant]
  4. VALPROIC ACID [Concomitant]
  5. CLONAZEPAM [Concomitant]

REACTIONS (4)
  - B-LYMPHOCYTE COUNT DECREASED [None]
  - HYPOGAMMAGLOBULINAEMIA [None]
  - INTERSTITIAL LUNG DISEASE [None]
  - RASH [None]
